FAERS Safety Report 6417398-5 (Version None)
Quarter: 2009Q4

REPORT INFORMATION
  Report Type: 
  Country: None (occurrence: None)
  Receive Date: 20091027
  Receipt Date: 20091027
  Transmission Date: 20100525
  Serious: Yes (Hospitalization)
  Sender: FDA-Public Use
  Company Number: None

PATIENT
  Sex: Female

DRUGS (1)
  1. COPAXONE [Suspect]
     Dosage: COPAZONE 20MG DAILY SQ
     Route: 058

REACTIONS (5)
  - HEART RATE INCREASED [None]
  - INJECTION SITE REACTION [None]
  - PHARYNGEAL OEDEMA [None]
  - RASH GENERALISED [None]
  - SWELLING FACE [None]
